FAERS Safety Report 5810882-4 (Version None)
Quarter: 2008Q3

REPORT INFORMATION
  Report Type: 
  Country: None (occurrence: None)
  Receive Date: 20080716
  Receipt Date: 20080702
  Transmission Date: 20090109
  Serious: Yes (Hospitalization)
  Sender: FDA-Public Use
  Company Number: PHEH2008US05907

PATIENT
  Sex: Female

DRUGS (1)
  1. TOBI [Suspect]
     Dosage: UNK
     Dates: start: 20051001

REACTIONS (4)
  - AMNESIA [None]
  - BLOOD TEST ABNORMAL [None]
  - DEAFNESS [None]
  - RENAL IMPAIRMENT [None]
